FAERS Safety Report 14328166 (Version 4)
Quarter: 2018Q1

REPORT INFORMATION
  Report Type: Spontaneous
  Country: ES (occurrence: ES)
  Receive Date: 20171227
  Receipt Date: 20180129
  Transmission Date: 20180509
  Serious: Yes (Other)
  Sender: FDA-Public Use
  Company Number: ES-PFIZER INC-2017546280

PATIENT
  Age: 26 Year
  Sex: Female

DRUGS (4)
  1. AZITHROMYCIN ANHYDROUS. [Suspect]
     Active Substance: AZITHROMYCIN ANHYDROUS
     Indication: PRETERM PREMATURE RUPTURE OF MEMBRANES
     Dosage: 1 G, UNK (1G IN MONODOSIS)
     Route: 048
  2. BETAMETHASONE. [Suspect]
     Active Substance: BETAMETHASONE
     Indication: MATERNAL THERAPY TO ENHANCE FOETAL LUNG MATURITY
     Dosage: 500 MG, 3X/DAY (EVERY 8 HOURS)
  3. OXYTOCIN. [Suspect]
     Active Substance: OXYTOCIN
     Indication: LABOUR INDUCTION
     Dosage: UNK
     Route: 042
  4. AMPICILLIN TRIHYDRATE. [Suspect]
     Active Substance: AMPICILLIN TRIHYDRATE
     Dosage: 2 G AMPICILLIN THEN 1 G/6 H FOR 48 H
     Route: 042

REACTIONS (2)
  - Pathogen resistance [Unknown]
  - Amniotic cavity infection [Unknown]
